FAERS Safety Report 6836299-1 (Version None)
Quarter: 2010Q2

REPORT INFORMATION
  Report Type: 
  Country: None (occurrence: None)
  Receive Date: 20100624
  Receipt Date: 20100426
  Transmission Date: 20101027
  Serious: No
  Sender: FDA-Public Use
  Company Number: DKLU1062285

PATIENT
  Age: 28 Month
  Sex: Male

DRUGS (1)
  1. CHLORAMPHENICOL [Suspect]
     Indication: SINUSITIS
     Dosage: 2 IN 1 D, ORAL
     Route: 048
     Dates: start: 20100422

REACTIONS (2)
  - POTENTIATING DRUG INTERACTION [None]
  - RASH [None]
